FAERS Safety Report 7916991-8 (Version None)
Quarter: 2011Q4

REPORT INFORMATION
  Report Type: 
  Country: None (occurrence: None)
  Receive Date: 20111116
  Receipt Date: 20111116
  Transmission Date: 20120403
  Serious: Yes (Other)
  Sender: FDA-Public Use
  Company Number: None

PATIENT
  Age: 61 Year
  Sex: Male
  Weight: 73.935 kg

DRUGS (3)
  1. ATORVASTATIN [Suspect]
     Indication: CORONARY ARTERY BYPASS
     Dosage: 80 MG
     Route: 048
     Dates: start: 20100815, end: 20110804
  2. ATORVASTATIN [Suspect]
     Indication: MYOCARDIAL INFARCTION
     Dosage: 80 MG
     Route: 048
     Dates: start: 20100815, end: 20110804
  3. ATORVASTATIN [Suspect]
     Indication: BLOOD CHOLESTEROL INCREASED
     Dosage: 80 MG
     Route: 048
     Dates: start: 20100815, end: 20110804

REACTIONS (2)
  - COGNITIVE DISORDER [None]
  - IMPAIRED WORK ABILITY [None]
